FAERS Safety Report 12969433 (Version 1)
Quarter: 2016Q4

REPORT INFORMATION
  Report Type: Spontaneous
  Country: FR (occurrence: FR)
  Receive Date: 20161123
  Receipt Date: 20161123
  Transmission Date: 20170207
  Serious: Yes (Hospitalization)
  Sender: FDA-Public Use
  Company Number: FR-SA-2016SA212318

PATIENT
  Age: 55 Year
  Sex: Male

DRUGS (10)
  1. LOVENOX [Suspect]
     Active Substance: ENOXAPARIN SODIUM
     Route: 042
     Dates: start: 20160922, end: 20161007
  2. CEFOTAXIME [Concomitant]
     Active Substance: CEFOTAXIME SODIUM
     Route: 042
     Dates: start: 20160922, end: 20160925
  3. PARACETAMOL [Concomitant]
     Active Substance: ACETAMINOPHEN
     Route: 042
     Dates: start: 20160922
  4. XENETIX [Concomitant]
     Active Substance: IOBITRIDOL
     Route: 040
     Dates: start: 20161006, end: 20161006
  5. ESOMEPRAZOLE [Concomitant]
     Active Substance: ESOMEPRAZOLE
     Route: 042
     Dates: start: 20160922
  6. RIFADINE [Suspect]
     Active Substance: RIFAMPIN
     Dosage: ROUTE- INTRAVENOUS INFUSION
     Route: 042
     Dates: start: 20160925, end: 20161007
  7. CIFLOX [Suspect]
     Active Substance: CIPROFLOXACIN
     Dosage: ROUTE- INTRAVENOUS INFUSION
     Dates: start: 20160925, end: 20161007
  8. VANCOMYCIN [Concomitant]
     Active Substance: VANCOMYCIN
     Route: 042
     Dates: start: 20160922, end: 20160925
  9. FORTUM [Suspect]
     Active Substance: CEFTAZIDIME
     Dosage: ROUTE- INTRAVENOUS INFUSION
     Dates: start: 20160925, end: 20161007
  10. LASILIX [Concomitant]
     Active Substance: FUROSEMIDE
     Route: 042
     Dates: start: 20161004, end: 20161009

REACTIONS (1)
  - Toxic epidermal necrolysis [Recovering/Resolving]

NARRATIVE: CASE EVENT DATE: 20161007
